FAERS Safety Report 16658678 (Version 1)
Quarter: 2019Q3

REPORT INFORMATION
  Report Type: Spontaneous
  Country: CN (occurrence: CN)
  Receive Date: 20190801
  Receipt Date: 20190801
  Transmission Date: 20191004
  Serious: Yes (Hospitalization)
  Sender: FDA-Public Use
  Company Number: CN-PFM-2019-09095

PATIENT

DRUGS (10)
  1. VINORELBINE [Suspect]
     Active Substance: VINORELBINE TARTRATE
     Indication: BREAST CANCER
     Dosage: 100 MG D1 AND  D8
     Route: 048
     Dates: start: 20190304
  2. VINORELBINE [Suspect]
     Active Substance: VINORELBINE TARTRATE
     Dosage: 100 MG D1 AND  D8
     Route: 048
     Dates: start: 20190328
  3. EVEROLIMUS. [Suspect]
     Active Substance: EVEROLIMUS
     Dosage: 5 MG, QD (1/DAY)
     Route: 048
     Dates: start: 20190523
  4. EVEROLIMUS. [Suspect]
     Active Substance: EVEROLIMUS
     Dosage: 5 MG, QD (1/DAY)
     Route: 048
     Dates: start: 20190328
  5. EVEROLIMUS. [Suspect]
     Active Substance: EVEROLIMUS
     Dosage: 5 MG, QD (1/DAY)
     Route: 048
     Dates: start: 20190613, end: 20190705
  6. VINORELBINE [Suspect]
     Active Substance: VINORELBINE TARTRATE
     Dosage: 100 MG D1 AND  D8
     Route: 048
     Dates: start: 20190502
  7. EVEROLIMUS. [Suspect]
     Active Substance: EVEROLIMUS
     Indication: BREAST CANCER
     Dosage: 5 MG, QD (1/DAY)
     Route: 048
     Dates: start: 20190304
  8. VINORELBINE [Suspect]
     Active Substance: VINORELBINE TARTRATE
     Dosage: 100 MG D1 AND  D8
     Route: 048
     Dates: start: 20190613
  9. EVEROLIMUS. [Suspect]
     Active Substance: EVEROLIMUS
     Dosage: 5 MG, QD (1/DAY)
     Route: 048
     Dates: start: 20190502
  10. VINORELBINE [Suspect]
     Active Substance: VINORELBINE TARTRATE
     Dosage: 100 MG D1 AND  D8
     Route: 048
     Dates: start: 20190523

REACTIONS (2)
  - Colitis ulcerative [Recovering/Resolving]
  - Proctitis ulcerative [Recovering/Resolving]

NARRATIVE: CASE EVENT DATE: 20190708
